FAERS Safety Report 9315345 (Version 1)
Quarter: 2013Q2

REPORT INFORMATION
  Report Type: Report from Study
  Country: US (occurrence: US)
  Receive Date: 20130529
  Receipt Date: 20130529
  Transmission Date: 20140414
  Serious: Yes (Hospitalization, Other)
  Sender: FDA-Public Use
  Company Number: US-ABBOTT-13P-163-1093137-00

PATIENT
  Sex: Female
  Weight: 105.33 kg

DRUGS (10)
  1. HUMIRA [Suspect]
     Indication: RHEUMATOID ARTHRITIS
  2. HUMIRA [Suspect]
     Indication: RHEUMATOID ARTHRITIS
  3. ENBREL [Suspect]
     Indication: RHEUMATOID ARTHRITIS
     Dates: end: 201212
  4. LEFLUNOMIDE [Suspect]
     Indication: RHEUMATOID ARTHRITIS
  5. PLAQUENIL [Suspect]
     Indication: RHEUMATOID ARTHRITIS
  6. SIMVASTATIN [Suspect]
     Indication: PRODUCT USED FOR UNKNOWN INDICATION
     Dates: start: 201212
  7. CARVEDILOL [Concomitant]
     Indication: HYPERTENSION
  8. LISINOPRIL [Concomitant]
     Indication: HYPERTENSION
  9. BIRTH CONTROL MEDICATION [Concomitant]
     Indication: CONTRACEPTION
  10. BABY ASPIRIN [Concomitant]
     Indication: PRODUCT USED FOR UNKNOWN INDICATION

REACTIONS (7)
  - Intervertebral disc degeneration [Recovered/Resolved]
  - Incision site infection [Recovered/Resolved]
  - Dyspnoea [Recovered/Resolved]
  - Cardiac valve disease [Recovered/Resolved]
  - Exostosis [Unknown]
  - Drug ineffective [Not Recovered/Not Resolved]
  - Pain [Unknown]
